FAERS Safety Report 5470826-4 (Version None)
Quarter: 2007Q3

REPORT INFORMATION
  Report Type: 
  Country: None (occurrence: None)
  Receive Date: 20070925
  Receipt Date: 20070920
  Transmission Date: 20080115
  Serious: Yes (Life-Threatening)
  Sender: FDA-Public Use
  Company Number: 2007-164577-NL

PATIENT
  Age: 55 Year
  Sex: Male

DRUGS (1)
  1. VECURONIUM BROMIDE [Suspect]
     Indication: CRANIOTOMY
     Dates: start: 20070917

REACTIONS (1)
  - BRAIN OEDEMA [None]
